FAERS Safety Report 6035867-7 (Version None)
Quarter: 2009Q1

REPORT INFORMATION
  Report Type: 
  Country: None (occurrence: None)
  Receive Date: 20090113
  Receipt Date: 20090109
  Transmission Date: 20090719
  Serious: Yes (Other)
  Sender: FDA-Public Use
  Company Number: FR-BRISTOL-MYERS SQUIBB COMPANY-14450506

PATIENT
  Age: 64 Year
  Sex: Male

DRUGS (4)
  1. ERBITUX [Suspect]
     Indication: BILE DUCT CANCER RECURRENT
     Route: 042
     Dates: start: 20081105, end: 20081105
  2. METHYLPREDNISOLONE 16MG TAB [Concomitant]
     Indication: PREMEDICATION
     Dates: start: 20081104, end: 20081105
  3. RANITIDINE [Concomitant]
     Indication: PREMEDICATION
     Dates: start: 20081104, end: 20081105
  4. POLARAMINE [Concomitant]
     Indication: PREMEDICATION
     Dates: start: 20081104, end: 20081105

REACTIONS (3)
  - INFUSION RELATED REACTION [None]
  - OESOPHAGEAL PAIN [None]
  - PARAESTHESIA ORAL [None]
